FAERS Safety Report 5323214-5 (Version None)
Quarter: 2007Q2

REPORT INFORMATION
  Report Type: 
  Country: None (occurrence: None)
  Receive Date: 20070220
  Receipt Date: 20070111
  Transmission Date: 20071010
  Serious: No
  Sender: FDA-Public Use
  Company Number: WAES 0701USA01874

PATIENT
  Age: 52 Year
  Sex: Female

DRUGS (9)
  1. JANUVIA [Suspect]
     Indication: DIABETES MELLITUS NON-INSULIN-DEPENDENT
     Dosage: 100 MG/DAILY/PO
     Route: 048
     Dates: start: 20061212, end: 20070108
  2. ACTOS [Concomitant]
  3. AMARYL [Concomitant]
  4. GLUCOPHAGE [Concomitant]
  5. LANTUS [Concomitant]
  6. PRILOSEC [Concomitant]
  7. ZOCOR [Concomitant]
  8. DILTIAZEM HYDORCHLORIDE [Concomitant]
  9. LISINOPRIL [Concomitant]

REACTIONS (1)
  - MIGRAINE [None]
